FAERS Safety Report 8071707-2 (Version None)
Quarter: 2012Q1

REPORT INFORMATION
  Report Type: 
  Country: None (occurrence: None)
  Receive Date: 20120125
  Receipt Date: 20120117
  Transmission Date: 20120608
  Serious: Yes (Hospitalization, Other)
  Sender: FDA-Public Use
  Company Number: US-ASTRAZENECA-2010SE49455

PATIENT
  Age: 49 Year
  Sex: Male
  Weight: 118.8 kg

DRUGS (10)
  1. SYMBICORT [Concomitant]
     Indication: CHRONIC OBSTRUCTIVE PULMONARY DISEASE
     Dosage: 160/4.5 MCG 2 INHALATIONS BID
     Route: 055
  2. FLEXERIL [Concomitant]
     Indication: MUSCLE SPASMS
     Dosage: 1 TABLET (10 MG) BID PRN
     Route: 048
  3. FLEXERIL [Concomitant]
     Indication: MUSCLE RELAXANT THERAPY
     Dosage: 1 TABLET (10 MG) BID PRN
     Route: 048
  4. NEXIUM [Suspect]
     Route: 048
  5. ASPIRIN [Concomitant]
     Indication: ANTICOAGULANT THERAPY
  6. NEXIUM [Suspect]
     Indication: GASTROOESOPHAGEAL REFLUX DISEASE
     Route: 048
  7. METFORMIN HCL [Concomitant]
     Indication: DIABETES MELLITUS
     Route: 048
  8. HYDROCODONE BITARTRATE AND ACETAMINOPHEN [Concomitant]
     Indication: ARTHRALGIA
     Dosage: 7.5 MG/650 MG Q6H PRN
     Route: 048
  9. PROAIR HFA [Concomitant]
     Dosage: 90 MCG 1 TO 2 PUFFS Q4 TO 6 HR
     Route: 048
  10. DIGOXIN [Concomitant]
     Indication: SINUS ARRHYTHMIA

REACTIONS (13)
  - TYPE 2 DIABETES MELLITUS [None]
  - PAIN IN EXTREMITY [None]
  - THROAT IRRITATION [None]
  - HEART RATE ABNORMAL [None]
  - FATIGUE [None]
  - INAPPROPRIATE SCHEDULE OF DRUG ADMINISTRATION [None]
  - OESOPHAGEAL OBSTRUCTION [None]
  - GASTROOESOPHAGEAL REFLUX DISEASE [None]
  - DYSPNOEA [None]
  - CHRONIC OBSTRUCTIVE PULMONARY DISEASE [None]
  - BACK PAIN [None]
  - PHARYNGEAL OEDEMA [None]
  - ESSENTIAL HYPERTENSION [None]
